FAERS Safety Report 8942960 (Version 1)
Quarter: 2012Q4

REPORT INFORMATION
  Report Type: Spontaneous
  Country: US (occurrence: None)
  Receive Date: 20121121
  Receipt Date: 20121121
  Transmission Date: 20130627
  Serious: Yes (Other)
  Sender: FDA-Public Use
  Company Number: AUR-APL-2012-04932

PATIENT
  Age: 50 Year
  Sex: Female

DRUGS (7)
  1. QUETIAPINE [Suspect]
     Indication: DEPRESSION
  2. VERAPAMIL (VERPAMIL) [Concomitant]
  3. LISINOPRIL (LISINOPRIL) [Concomitant]
  4. HYDROCHLOROTHIAZIDE (HYDROCHLOROTHIAZIDE) [Concomitant]
  5. BUPROPION ( BUPROPION) [Concomitant]
  6. VENLAFAXINE [Concomitant]
  7. TOPIRAMATE (TOPIRAMATE) [Concomitant]

REACTIONS (3)
  - Somnambulism [None]
  - Sleep-related eating disorder [None]
  - Weight decreased [None]
